FAERS Safety Report 16012958 (Version 1)
Quarter: 2019Q1

REPORT INFORMATION
  Report Type: Spontaneous
  Country: US (occurrence: US)
  Receive Date: 20190227
  Receipt Date: 20190227
  Transmission Date: 20190418
  Serious: Yes (Other)
  Sender: FDA-Public Use
  Company Number: None

PATIENT
  Age: 64 Year
  Sex: Male
  Weight: 84.65 kg

DRUGS (6)
  1. DEXAMETHASONE. [Concomitant]
     Active Substance: DEXAMETHASONE
  2. DIAZEPAM. [Concomitant]
     Active Substance: DIAZEPAM
  3. ALBUTEROL. [Concomitant]
     Active Substance: ALBUTEROL
     Indication: VOMITING
  4. ONDANSETRON [Suspect]
     Active Substance: ONDANSETRON
     Indication: NAUSEA
     Route: 048
     Dates: start: 20190215, end: 20190216
  5. ALBUTEROL. [Concomitant]
     Active Substance: ALBUTEROL
  6. FOLFOX(FLUOROURACIL, OXALIPLATIN, LEUCOVORIN) [Concomitant]

REACTIONS (1)
  - Paraesthesia [None]

NARRATIVE: CASE EVENT DATE: 20190215
